FAERS Safety Report 13021429 (Version 8)
Quarter: 2017Q3

REPORT INFORMATION
  Report Type: Report from Study
  Country: CO (occurrence: CO)
  Receive Date: 20161213
  Receipt Date: 20170911
  Transmission Date: 20171127
  Serious: Yes (Other)
  Sender: FDA-Public Use
  Company Number: CO-ROCHE-1750439

PATIENT
  Age: 48 Year
  Sex: Male

DRUGS (2)
  1. ACTEMRA [Suspect]
     Active Substance: TOCILIZUMAB
     Indication: RHEUMATOID ARTHRITIS
     Dosage: 162 MG EVERY 1 WEEK
     Route: 058
     Dates: start: 20161125, end: 20161204
  2. ACTEMRA [Suspect]
     Active Substance: TOCILIZUMAB
     Indication: RHEUMATOID ARTHRITIS
     Route: 042
     Dates: start: 20140917, end: 20160517

REACTIONS (12)
  - Breath odour [Recovered/Resolved]
  - Oedema peripheral [Recovering/Resolving]
  - Laceration [Recovered/Resolved]
  - Lentigo [Not Recovered/Not Resolved]
  - Phlebitis [Recovering/Resolving]
  - Soft tissue injury [Recovered/Resolved]
  - Throat lesion [Recovering/Resolving]
  - Rash pruritic [Recovering/Resolving]
  - Arthralgia [Not Recovered/Not Resolved]
  - Headache [Recovering/Resolving]
  - Pyrexia [Recovered/Resolved]
  - Gingival pain [Not Recovered/Not Resolved]

NARRATIVE: CASE EVENT DATE: 201604
